FAERS Safety Report 6726104-6 (Version None)
Quarter: 2010Q2

REPORT INFORMATION
  Report Type: 
  Country: None (occurrence: None)
  Receive Date: 20100514
  Receipt Date: 20100503
  Transmission Date: 20101027
  Serious: Yes (Hospitalization)
  Sender: FDA-Public Use
  Company Number: US-PFIZER INC-2010049835

PATIENT
  Age: 18 Year
  Sex: Male

DRUGS (1)
  1. SUNITINIB MALATE [Suspect]
     Indication: PERITONEAL MESOTHELIOMA MALIGNANT
     Dosage: 15 MG/M2, 1X/DAY, DAYS 1-28
     Route: 048
     Dates: start: 20100302, end: 20100317

REACTIONS (2)
  - INTESTINAL DILATATION [None]
  - PNEUMATOSIS [None]
